FAERS Safety Report 4622431-7 (Version None)
Quarter: 2005Q1

REPORT INFORMATION
  Report Type: 
  Country: None (occurrence: None)
  Receive Date: 20050325
  Receipt Date: 20050325
  Transmission Date: 20050727
  Serious: Yes (Other)
  Sender: FDA-Public Use
  Company Number: None

PATIENT
  Age: 31 Year
  Sex: Male
  Weight: 90.4926 kg

DRUGS (1)
  1. SEPTRA DS [Suspect]
     Indication: SOFT TISSUE INFECTION
     Dosage: DS ORAL
     Route: 048
     Dates: start: 20050320, end: 20050321

REACTIONS (1)
  - RASH [None]
